FAERS Safety Report 5204676-0 (Version None)
Quarter: 2007Q1

REPORT INFORMATION
  Report Type: 
  Country: None (occurrence: None)
  Receive Date: 20070110
  Receipt Date: 20060613
  Transmission Date: 20070707
  Serious: No
  Sender: FDA-Public Use
  Company Number: US-BRISTOL-MYERS SQUIBB COMPANY-13410162

PATIENT
  Age: 3 Decade
  Sex: Male

DRUGS (3)
  1. ABILIFY [Suspect]
     Indication: BIPOLAR I DISORDER
     Dates: end: 20060613
  2. ZYPREXA [Concomitant]
  3. LAMICTAL [Concomitant]

REACTIONS (2)
  - BRUXISM [None]
  - EXTRAPYRAMIDAL DISORDER [None]
